FAERS Safety Report 25861380 (Version 1)
Quarter: 2025Q3

REPORT INFORMATION
  Report Type: Report from Study
  Country: TH (occurrence: TH)
  Receive Date: 20250929
  Receipt Date: 20250929
  Transmission Date: 20251020
  Serious: Yes (Other)
  Sender: ALEXION PHARMACEUTICALS
  Company Number: TH-AstraZeneca-CH-00958459A

PATIENT
  Sex: Male

DRUGS (1)
  1. CALQUENCE [Suspect]
     Active Substance: ACALABRUTINIB
     Indication: Chronic lymphocytic leukaemia

REACTIONS (21)
  - Renal failure [Unknown]
  - Coronary artery stenosis [Unknown]
  - Aortic dilatation [Unknown]
  - Pulmonary artery dilatation [Unknown]
  - Long QT syndrome [Unknown]
  - Obstructive sleep apnoea syndrome [Unknown]
  - Arthritis [Unknown]
  - Hyperuricaemia [Not Recovered/Not Resolved]
  - Coronary artery disease [Unknown]
  - Obesity [Unknown]
  - Blood glucose abnormal [Unknown]
  - Dyslipidaemia [Unknown]
  - Sleep-related breathing disorder [Unknown]
  - Oropharyngeal plaque [Unknown]
  - Coronary artery disease [Unknown]
  - Aortic valve calcification [Unknown]
  - Lymphadenopathy [Unknown]
  - Splenomegaly [Unknown]
  - Tonsillar hypertrophy [Unknown]
  - Lesion excision [Unknown]
  - Cyst [Unknown]
